FAERS Safety Report 13591791 (Version 4)
Quarter: 2017Q3

REPORT INFORMATION
  Report Type: Spontaneous
  Country: JP (occurrence: JP)
  Receive Date: 20170530
  Receipt Date: 20170918
  Transmission Date: 20171127
  Serious: Yes (Death, Disabling, Other)
  Sender: FDA-Public Use
  Company Number: JP-OTSUKA-2017_011560

PATIENT
  Age: 72 Year
  Sex: Male
  Weight: 80 kg

DRUGS (13)
  1. BAYASPIRIN [Concomitant]
     Active Substance: ASPIRIN
     Indication: PRODUCT USED FOR UNKNOWN INDICATION
     Dosage: 100 MG, QD, SINCE AROUND 2010
     Route: 048
  2. CARVEDILOL. [Concomitant]
     Active Substance: CARVEDILOL
     Indication: PRODUCT USED FOR UNKNOWN INDICATION
     Dosage: 35 MG, QD, SINCE AROUND 2014
     Route: 048
     Dates: end: 20170529
  3. DILTIAZEM HYDROCHLORIDE. [Concomitant]
     Active Substance: DILTIAZEM HYDROCHLORIDE
     Indication: PRODUCT USED FOR UNKNOWN INDICATION
     Dosage: 100 MG, QD,SINCE AROUND 2010
     Route: 048
  4. FUROSEMIDE. [Concomitant]
     Active Substance: FUROSEMIDE
     Indication: PRODUCT USED FOR UNKNOWN INDICATION
     Dosage: 40 (UNIT UNKNOWN), TWICE, UNK
     Route: 042
     Dates: start: 20170520
  5. SAMSCA [Suspect]
     Active Substance: TOLVAPTAN
     Indication: CARDIAC FAILURE
     Dosage: 15 MG, QD, IN THE EVENING
     Route: 048
     Dates: start: 20170520, end: 20170520
  6. SALINE [Concomitant]
     Active Substance: SODIUM CHLORIDE
     Indication: PRODUCT USED FOR UNKNOWN INDICATION
     Dosage: 500 (UNIT UNKNOWN), UNK
     Route: 065
     Dates: start: 20170520
  7. SALINE [Concomitant]
     Active Substance: SODIUM CHLORIDE
     Dosage: 500 (UNIT UNKNOWN), UNK
     Route: 065
     Dates: start: 20170521
  8. WARFARIN [Concomitant]
     Active Substance: WARFARIN
     Indication: PRODUCT USED FOR UNKNOWN INDICATION
     Dosage: 3.5 MG, QD, SINCE AROUND 2010
     Route: 048
  9. FEBURIC [Concomitant]
     Active Substance: FEBUXOSTAT
     Indication: PRODUCT USED FOR UNKNOWN INDICATION
     Dosage: 40 MG, QD,SINCE AROUND 2010
     Route: 048
  10. SAMSCA [Suspect]
     Active Substance: TOLVAPTAN
     Dosage: 15 MG, QD, IN THE MORNING
     Route: 048
     Dates: start: 20170521, end: 20170521
  11. SAMSCA [Suspect]
     Active Substance: TOLVAPTAN
     Dosage: 15MG, DAILY DOSE
     Route: 048
     Dates: start: 20170522, end: 20170522
  12. ENALAPRIL [Concomitant]
     Active Substance: ENALAPRIL
     Indication: PRODUCT USED FOR UNKNOWN INDICATION
     Dosage: 1.25 MG, QD,SINCE AROUND 2010
     Route: 048
  13. FUROSEMIDE. [Concomitant]
     Active Substance: FUROSEMIDE
     Indication: PRODUCT USED FOR UNKNOWN INDICATION
     Dosage: 60 MG, QD,SINCE AROUND 2010
     Route: 048

REACTIONS (3)
  - Liver function test increased [Unknown]
  - Pneumonia [Fatal]
  - Hypernatraemia [Unknown]

NARRATIVE: CASE EVENT DATE: 20170522
